FAERS Safety Report 13152045 (Version 4)
Quarter: 2017Q2

REPORT INFORMATION
  Report Type: Spontaneous
  Country: US (occurrence: US)
  Receive Date: 20170125
  Receipt Date: 20170406
  Transmission Date: 20170830
  Serious: Yes (Other)
  Sender: FDA-Public Use
  Company Number: US-ACORDA-ACO_133030_2017

PATIENT

DRUGS (3)
  1. AMPYRA [Suspect]
     Active Substance: DALFAMPRIDINE
     Indication: PRODUCT USED FOR UNKNOWN INDICATION
     Dosage: UNK
     Route: 065
  2. TECFIDERA [Suspect]
     Active Substance: DIMETHYL FUMARATE
     Indication: MULTIPLE SCLEROSIS
     Dosage: 240 MG, BID
     Route: 048
     Dates: start: 20131017, end: 20170112
  3. TYSABRI [Suspect]
     Active Substance: NATALIZUMAB
     Indication: PRODUCT USED FOR UNKNOWN INDICATION
     Dosage: UNK
     Route: 065

REACTIONS (10)
  - Multiple sclerosis relapse [Unknown]
  - Gait disturbance [Unknown]
  - Demyelination [Unknown]
  - Coordination abnormal [Unknown]
  - Condition aggravated [Unknown]
  - Walking aid user [Unknown]
  - Seizure [Unknown]
  - Muscle spasticity [Unknown]
  - Drug ineffective [Unknown]
  - Balance disorder [Unknown]

NARRATIVE: CASE EVENT DATE: 2013
